FAERS Safety Report 8780434 (Version 1)
Quarter: 2012Q4

REPORT INFORMATION
  Report Type: Spontaneous
  Country: US (occurrence: None)
  Receive Date: 20120905
  Receipt Date: 20120905
  Transmission Date: 20130627
  Serious: No
  Sender: FDA-Public Use
  Company Number: None

PATIENT
  Age: 59 Year
  Sex: Female

DRUGS (2)
  1. RIBAPAK [Suspect]
     Indication: HEPATITIS C
     Route: 048
     Dates: start: 20120529
  2. PEGASYS [Suspect]
     Route: 058
     Dates: start: 20120529

REACTIONS (3)
  - Feeling cold [None]
  - Rash [None]
  - Swelling [None]
